FAERS Safety Report 7650227-0 (Version None)
Quarter: 2011Q3

REPORT INFORMATION
  Report Type: 
  Country: None (occurrence: None)
  Receive Date: 20110802
  Receipt Date: 20110719
  Transmission Date: 20111222
  Serious: Yes (Death)
  Sender: FDA-Public Use
  Company Number: JP-ROCHE-790017

PATIENT
  Sex: Male
  Weight: 69 kg

DRUGS (5)
  1. TEMODAL [Suspect]
     Indication: MALIGNANT GLIOMA
     Dosage: DOSE NOT REPORTED
     Route: 048
     Dates: start: 20071210
  2. TEMODAL [Suspect]
     Dosage: DOSAGE WAS UNCERTAIN, 11 CYCLES AND A TOTAL OF 14 CYCLES
     Route: 048
     Dates: start: 20081016, end: 20090701
  3. TEMODAL [Suspect]
     Dosage: DOSE NOT SPECIFIED
     Route: 048
     Dates: start: 20080601, end: 20080701
  4. TEMODAL [Suspect]
     Dosage: DOSE NOT REPORTED, FIVE DAY X 1
     Route: 048
     Dates: start: 20080501
  5. AVASTIN [Suspect]
     Indication: MALIGNANT GLIOMA
     Route: 041
     Dates: start: 20090901, end: 20100622

REACTIONS (2)
  - DISEASE PROGRESSION [None]
  - LYMPHOCYTE COUNT DECREASED [None]
